FAERS Safety Report 16033797 (Version 1)
Quarter: 2019Q1

REPORT INFORMATION
  Report Type: Spontaneous
  Country: US (occurrence: US)
  Receive Date: 20190206
  Receipt Date: 20190206
  Transmission Date: 20190418
  Serious: No
  Sender: FDA-Public Use
  Company Number: None

PATIENT
  Age: 57 Year
  Sex: Female

DRUGS (1)
  1. STELARA [Suspect]
     Active Substance: USTEKINUMAB
     Indication: PSORIATIC ARTHROPATHY
     Dosage: ?          OTHER FREQUENCY:DAY 0 AND 28AS DIRECTED?
     Route: 058
     Dates: start: 201809

REACTIONS (5)
  - Joint lock [None]
  - Pain in extremity [None]
  - Back pain [None]
  - Gait disturbance [None]
  - Arthralgia [None]
